FAERS Safety Report 10015239 (Version 2)
Quarter: 2014Q2

REPORT INFORMATION
  Report Type: Spontaneous
  Country: US (occurrence: US)
  Receive Date: 20140317
  Receipt Date: 20140409
  Transmission Date: 20141212
  Serious: No
  Sender: FDA-Public Use
  Company Number: US-PFIZER INC-2014073057

PATIENT
  Age: 79 Year
  Sex: Female

DRUGS (2)
  1. LYRICA [Suspect]
     Indication: FIBROMYALGIA
     Dosage: 200 MG (BY TAKING 2 CAPSULES OF 100MG AT A TIME), 3X/DAY
     Route: 048
     Dates: start: 2012
  2. LYRICA [Suspect]
     Indication: OSTEOARTHRITIS
     Dosage: 200 MG (BY TAKING 2 CAPSULES OF 100MG AT A TIME), 3X/DAY
     Route: 048
     Dates: start: 2012

REACTIONS (2)
  - Activities of daily living impaired [Unknown]
  - Pain [Unknown]
